FAERS Safety Report 11735025 (Version 2)
Quarter: 2015Q4

REPORT INFORMATION
  Report Type: Report from Study
  Country: TR (occurrence: TR)
  Receive Date: 20151113
  Receipt Date: 20151113
  Transmission Date: 20160304
  Serious: Yes (Death, Hospitalization)
  Sender: FDA-Public Use
  Company Number: TR-ABBVIE-15P-161-1496889-00

PATIENT
  Age: 75 Year
  Sex: Male
  Weight: 74 kg

DRUGS (3)
  1. EXELON [Concomitant]
     Active Substance: RIVASTIGMINE TARTRATE
     Indication: DEMENTIA
     Route: 062
     Dates: start: 2013
  2. DUODOPA [Suspect]
     Active Substance: CARBIDOPA\LEVODOPA
     Indication: PARKINSON^S DISEASE
     Dosage: MD: 8 M; LCD 2.8 ML; ED: 2 ML
     Route: 050
     Dates: start: 20151103, end: 20151109
  3. SEROQUEL [Concomitant]
     Active Substance: QUETIAPINE FUMARATE
     Indication: ANXIETY
     Route: 048
     Dates: start: 2015

REACTIONS (7)
  - Abdominal pain upper [Fatal]
  - Anuria [Fatal]
  - Hypotension [Fatal]
  - Stoma site extravasation [Recovered/Resolved]
  - Gastric perforation [Recovered/Resolved]
  - Abdominal tenderness [Fatal]
  - Sepsis [Fatal]

NARRATIVE: CASE EVENT DATE: 20151108
